FAERS Safety Report 16806592 (Version 3)
Quarter: 2020Q3

REPORT INFORMATION
  Report Type: Spontaneous
  Country: US (occurrence: US)
  Receive Date: 20190913
  Receipt Date: 20200827
  Transmission Date: 20201102
  Serious: Yes (Other)
  Sender: FDA-Public Use
  Company Number: US-SA-2019SA255162

PATIENT

DRUGS (1)
  1. DUPIXENT [Suspect]
     Active Substance: DUPILUMAB
     Indication: DERMATITIS ATOPIC
     Dosage: 300 MG, QOW
     Route: 058
     Dates: start: 20180405

REACTIONS (4)
  - Rash [Not Recovered/Not Resolved]
  - COVID-19 [Recovered/Resolved]
  - Dermatitis atopic [Not Recovered/Not Resolved]
  - SARS-CoV-2 test positive [Recovered/Resolved]
